FAERS Safety Report 5243992-3 (Version None)
Quarter: 2007Q1

REPORT INFORMATION
  Report Type: 
  Country: None (occurrence: None)
  Receive Date: 20070215
  Receipt Date: 20070206
  Transmission Date: 20070707
  Serious: Yes (Hospitalization)
  Sender: FDA-Public Use
  Company Number: 2007-154251-NL

PATIENT
  Age: 54 Year
  Sex: Female

DRUGS (1)
  1. VECURONIUM BROMIDE [Suspect]
     Dosage: INTRAVENOUS
     Route: 042

REACTIONS (2)
  - ANAPHYLACTIC SHOCK [None]
  - CROSS SENSITIVITY REACTION [None]
